FAERS Safety Report 6251739-7 (Version None)
Quarter: 2009Q2

REPORT INFORMATION
  Report Type: 
  Country: None (occurrence: None)
  Receive Date: 20090630
  Receipt Date: 20090619
  Transmission Date: 20091009
  Serious: Yes (Hospitalization)
  Sender: FDA-Public Use
  Company Number: PHHO2009DE08022

PATIENT
  Sex: Female

DRUGS (26)
  1. CYCLOSPORINE [Suspect]
     Indication: RENAL TRANSPLANT
     Dosage: 180 MG, BID
     Route: 048
     Dates: start: 20040610
  2. MYCOPHENOLATE MOFETIL [Suspect]
     Dosage: 1 G, BID
     Route: 048
     Dates: start: 20040610
  3. PREDNISOLONE [Suspect]
     Dosage: 100 MG, QD+ ONE OFF IV DOSE OF 250MG
     Route: 048
     Dates: start: 20040610
  4. PREDNISOLONE [Suspect]
     Dosage: UNK
  5. ACTONEL [Concomitant]
  6. AMPHOTERICIN B [Concomitant]
  7. ARANESP [Concomitant]
  8. NOREPINEPHRINE BITARTRATE [Concomitant]
  9. CALCIUM ACETATE [Concomitant]
  10. CIPROFLOXACIN [Concomitant]
  11. DOBUTAMINE HCL [Concomitant]
  12. DREISAVIT [Concomitant]
  13. FLUVASTATIN [Concomitant]
  14. FUROSEMIDE INTENSOL [Concomitant]
  15. HYDROCHLOROTHIAZIDE [Concomitant]
  16. KEPINOL [Concomitant]
  17. LACTULOSE [Concomitant]
  18. LORAZEPAM [Concomitant]
  19. NULYTELY [Concomitant]
  20. NEORECORMON [Concomitant]
  21. REDUCTO [Concomitant]
  22. TROMCARDIN [Concomitant]
  23. AMPICILLIN AND SULBACTAM [Concomitant]
  24. UNACID PD ORAL [Concomitant]
  25. K-DUR [Concomitant]
  26. PREDNISONE TAB [Concomitant]

REACTIONS (1)
  - CHOLECYSTITIS [None]
